FAERS Safety Report 13392907 (Version 1)
Quarter: 2017Q1

REPORT INFORMATION
  Report Type: Spontaneous
  Country: US (occurrence: US)
  Receive Date: 20170331
  Receipt Date: 20170331
  Transmission Date: 20170429
  Serious: No
  Sender: FDA-Public Use
  Company Number: US-MYLANLABS-2017M1004760

PATIENT
  Sex: Female
  Weight: 52.15 kg

DRUGS (1)
  1. FENTANYL TRANSDERMAL SYSTEM [Suspect]
     Active Substance: FENTANYL
     Indication: SPINAL FLATTENING
     Dosage: 75 ?G, QH CHANGED Q 24 HRS
     Route: 062

REACTIONS (3)
  - Application site haemorrhage [Not Recovered/Not Resolved]
  - Application site injury [Not Recovered/Not Resolved]
  - Application site rash [Not Recovered/Not Resolved]

NARRATIVE: CASE EVENT DATE: 201601
